FAERS Safety Report 10629793 (Version 1)
Quarter: 2014Q4

REPORT INFORMATION
  Report Type: Spontaneous
  Country: US (occurrence: US)
  Receive Date: 20141205
  Receipt Date: 20141205
  Transmission Date: 20150529
  Serious: No
  Sender: FDA-Public Use
  Company Number: US-BRISTOL-MYERS SQUIBB COMPANY-21395561

PATIENT
  Age: 52 Year
  Sex: Female
  Weight: 102.04 kg

DRUGS (5)
  1. FARXIGA [Concomitant]
     Active Substance: DAPAGLIFLOZIN PROPANEDIOL
  2. BYDUREON [Suspect]
     Active Substance: EXENATIDE
     Indication: TYPE 2 DIABETES MELLITUS
     Dosage: INJECTIONS ?ONGOING
     Route: 058
     Dates: start: 2013
  3. BYETTA [Suspect]
     Active Substance: EXENATIDE
  4. KOMBIGLYZE XR [Concomitant]
     Active Substance: METFORMIN HYDROCHLORIDE\SAXAGLIPTIN HYDROCHLORIDE
  5. CRESTOR [Concomitant]
     Active Substance: ROSUVASTATIN CALCIUM

REACTIONS (5)
  - Injection site nodule [Unknown]
  - Weight decreased [Unknown]
  - Injection site pain [Unknown]
  - Injection site pruritus [Unknown]
  - Injection site haemorrhage [Unknown]
